FAERS Safety Report 6791054-6 (Version None)
Quarter: 2010Q2

REPORT INFORMATION
  Report Type: 
  Country: None (occurrence: None)
  Receive Date: 20100624
  Receipt Date: 20100621
  Transmission Date: 20101027
  Serious: Yes (Hospitalization)
  Sender: FDA-Public Use
  Company Number: US-BRISTOL-MYERS SQUIBB COMPANY-15159197

PATIENT
  Age: 44 Year
  Sex: Male
  Weight: 100 kg

DRUGS (3)
  1. ABILIFY [Suspect]
     Indication: SCHIZOPHRENIA
     Dosage: REDUCED 10MG QD
     Dates: start: 20030101
  2. ABILIFY [Suspect]
     Indication: SCHIZOAFFECTIVE DISORDER
     Dosage: REDUCED 10MG QD
     Dates: start: 20030101
  3. KETOCONAZOLE [Concomitant]
     Dosage: KETOCONAZOLE SHAMPOO AND FACIAL LOTION
     Route: 061

REACTIONS (6)
  - FATIGUE [None]
  - GYNAECOMASTIA [None]
  - INFLUENZA LIKE ILLNESS [None]
  - MYALGIA [None]
  - SCHIZOPHRENIA, PARANOID TYPE [None]
  - SEBORRHOEIC DERMATITIS [None]
